FAERS Safety Report 5105826-7 (Version None)
Quarter: 2006Q3

REPORT INFORMATION
  Report Type: 
  Country: None (occurrence: None)
  Receive Date: 20060912
  Receipt Date: 20060901
  Transmission Date: 20061208
  Serious: Yes (Other)
  Sender: FDA-Public Use
  Company Number: B0437298A

PATIENT
  Age: 56 Year
  Sex: Male

DRUGS (6)
  1. NELARABINE (NELARABINE) (GENERIC) [Suspect]
     Indication: DISEASE RECURRENCE
  2. METHOTREXATE [Suspect]
     Indication: DISEASE RECURRENCE
     Dosage: SEE DOSAGE TEXT / INTRAVENT
     Route: 042
  3. CYTARABINE [Suspect]
     Indication: DISEASE RECURRENCE
  4. CYCLOPHOSPHAMIDE [Suspect]
     Indication: DISEASE RECURRENCE
  5. DOXORUBICIN HYDROCHLORIDE [Suspect]
     Indication: DRUG USE FOR UNKNOWN INDICATION
  6. DEXAMETHASONE TAB [Suspect]
     Indication: DRUG USE FOR UNKNOWN INDICATION

REACTIONS (7)
  - ABNORMAL BEHAVIOUR [None]
  - ABULIA [None]
  - CONFUSIONAL STATE [None]
  - DEMYELINATION [None]
  - DISINHIBITION [None]
  - HYPOMANIA [None]
  - LEUKOENCEPHALOPATHY [None]
